FAERS Safety Report 7386358-2 (Version None)
Quarter: 2011Q1

REPORT INFORMATION
  Report Type: 
  Country: None (occurrence: None)
  Receive Date: 20110331
  Receipt Date: 20100909
  Transmission Date: 20110831
  Serious: Yes (Hospitalization, Other)
  Sender: FDA-Public Use
  Company Number: US-BAYER-200938048NA

PATIENT
  Sex: Female
  Weight: 74.376 kg

DRUGS (8)
  1. LISINOPRIL [Concomitant]
  2. YASMIN [Suspect]
     Indication: MENORRHAGIA
  3. LEXAPRO [Concomitant]
     Indication: DEPRESSION
     Dosage: UNK
     Dates: start: 20071201, end: 20080101
  4. YASMIN [Suspect]
     Indication: PREMENSTRUAL SYNDROME
  5. THEOPHYLLINE [Concomitant]
  6. IBUPROFEN [Concomitant]
  7. YASMIN [Suspect]
     Indication: CONTRACEPTION
     Dosage: UNK
     Dates: start: 20070501, end: 20080101
  8. YASMIN [Suspect]
     Indication: MENSTRUATION IRREGULAR

REACTIONS (3)
  - PULMONARY EMBOLISM [None]
  - DEEP VEIN THROMBOSIS [None]
  - DEPRESSION [None]
